FAERS Safety Report 7300872-7 (Version None)
Quarter: 2011Q1

REPORT INFORMATION
  Report Type: 
  Country: None (occurrence: None)
  Receive Date: 20110218
  Receipt Date: 20110208
  Transmission Date: 20110831
  Serious: Yes (Other)
  Sender: FDA-Public Use
  Company Number: PHHY2010JP83782

PATIENT
  Sex: Male
  Weight: 58 kg

DRUGS (5)
  1. NSAID'S [Concomitant]
  2. MINOCYCLINE HCL [Concomitant]
  3. PREDNISOLONE [Concomitant]
  4. ZOMETA [Suspect]
     Indication: MULTIPLE MYELOMA
     Dosage: 4 MG, UNK
     Route: 042
     Dates: start: 20081229, end: 20090824
  5. MELPHALAN [Concomitant]

REACTIONS (7)
  - PARALYSIS [None]
  - DENTAL FISTULA [None]
  - PAIN IN JAW [None]
  - OSTEONECROSIS OF JAW [None]
  - BONE DISORDER [None]
  - GINGIVAL PAIN [None]
  - PRIMARY SEQUESTRUM [None]
